FAERS Safety Report 22056468 (Version 1)
Quarter: 2023Q1

REPORT INFORMATION
  Report Type: Spontaneous
  Country: US (occurrence: US)
  Receive Date: 20230302
  Receipt Date: 20230302
  Transmission Date: 20230418
  Serious: No
  Sender: FDA-Public Use
  Company Number: US-NOVOPROD-943217

PATIENT
  Age: 50 Year
  Sex: Female

DRUGS (2)
  1. VICTOZA [Suspect]
     Active Substance: LIRAGLUTIDE
     Indication: Type 2 diabetes mellitus
     Dosage: 0.6 MG, QW
     Route: 058
     Dates: start: 20220204
  2. VICTOZA [Suspect]
     Active Substance: LIRAGLUTIDE
     Dosage: 1.8 MG, QW
     Route: 058

REACTIONS (6)
  - Gastrooesophageal reflux disease [Recovered/Resolved]
  - Eructation [Recovered/Resolved]
  - Flatulence [Recovered/Resolved]
  - Dyspepsia [Recovered/Resolved]
  - Diarrhoea [Recovered/Resolved]
  - Decreased appetite [Recovered/Resolved]

NARRATIVE: CASE EVENT DATE: 20220201
